FAERS Safety Report 10006676 (Version 1)
Quarter: 2014Q1

REPORT INFORMATION
  Report Type: Spontaneous
  Country: US (occurrence: US)
  Receive Date: 20140313
  Receipt Date: 20140313
  Transmission Date: 20141002
  Serious: No
  Sender: FDA-Public Use
  Company Number: US-PFIZER INC-2014071670

PATIENT
  Sex: Female
  Weight: 52.15 kg

DRUGS (3)
  1. NORVASC [Suspect]
     Dosage: UNK
  2. CYTOTEC [Suspect]
     Dosage: UNK
  3. HYDROCHLOROTHIAZIDE [Suspect]
     Dosage: UNK

REACTIONS (1)
  - Drug hypersensitivity [Unknown]
